FAERS Safety Report 8934574 (Version 2)
Quarter: 2012Q4

REPORT INFORMATION
  Report Type: 
  Country: JP (occurrence: JP)
  Receive Date: 20121129
  Receipt Date: 20121221
  Transmission Date: 20130627
  Serious: Yes (Hospitalization)
  Sender: FDA-Public Use
  Company Number: JP-009507513-1211JPN011389

PATIENT
  Age: 51 Year
  Sex: Female

DRUGS (7)
  1. BONALON [Suspect]
     Indication: OSTEOPOROSIS
     Dosage: 35 mg weekly
     Route: 048
     Dates: start: 2008, end: 20121112
  2. JANUVIA TABLETS 50MG [Concomitant]
     Indication: DIABETES MELLITUS
     Dosage: 50 mg/day
     Route: 048
  3. AZULFIDINE EN [Concomitant]
     Indication: RHEUMATOID ARTHRITIS
     Dosage: 1000 mg/day
     Route: 048
  4. PREDONINE [Concomitant]
     Indication: RHEUMATOID ARTHRITIS
     Dosage: 10 mg/ day
     Route: 048
  5. VOLTAREN SR [Concomitant]
     Indication: RHEUMATOID ARTHRITIS
     Dosage: 75 mg/day
     Route: 048
  6. PROGRAF [Concomitant]
     Indication: RHEUMATOID ARTHRITIS
     Dosage: 2 mg/day
     Route: 048
  7. PREMINENT [Concomitant]
     Indication: HYPERTENSION
     Dosage: 1 DF/day
     Route: 048

REACTIONS (1)
  - Femur fracture [Recovering/Resolving]
